FAERS Safety Report 6059941-4 (Version None)
Quarter: 2009Q1

REPORT INFORMATION
  Report Type: 
  Country: None (occurrence: None)
  Receive Date: 20090130
  Receipt Date: 20090123
  Transmission Date: 20090719
  Serious: Yes (Hospitalization)
  Sender: FDA-Public Use
  Company Number: US-GENENTECH-276080

PATIENT
  Sex: Male
  Weight: 67.4 kg

DRUGS (4)
  1. BEVACIZUMAB [Suspect]
     Indication: HEPATIC NEOPLASM MALIGNANT
     Dosage: 10 MG/KG, Q2W
     Route: 042
     Dates: start: 20080421
  2. COMPAZINE [Concomitant]
     Indication: DRUG USE FOR UNKNOWN INDICATION
  3. IMODIUM [Concomitant]
     Indication: DRUG USE FOR UNKNOWN INDICATION
  4. OPIUM TINCTURE [Concomitant]
     Indication: DRUG USE FOR UNKNOWN INDICATION

REACTIONS (4)
  - ATRIAL FLUTTER [None]
  - CARDIOMYOPATHY [None]
  - DIARRHOEA [None]
  - FATIGUE [None]
